FAERS Safety Report 21111705 (Version 1)
Quarter: 2022Q3

REPORT INFORMATION
  Report Type: Report from Study
  Country: US (occurrence: US)
  Receive Date: 20220721
  Receipt Date: 20220721
  Transmission Date: 20221026
  Serious: Yes (Other)
  Sender: FDA-Public Use
  Company Number: US-GSKCCFUS-Case-01362058_AE-78804

PATIENT

DRUGS (1)
  1. BELANTAMAB MAFODOTIN [Suspect]
     Active Substance: BELANTAMAB MAFODOTIN
     Indication: Plasma cell myeloma
     Dosage: 198 MG
     Dates: start: 20220317, end: 202204

REACTIONS (10)
  - Corneal cyst [Unknown]
  - Dry eye [Unknown]
  - Vision blurred [Unknown]
  - Eye irritation [Unknown]
  - Depressed mood [Unknown]
  - Visual impairment [Unknown]
  - Foreign body sensation in eyes [Unknown]
  - Corneal disorder [Unknown]
  - Visual acuity reduced [Unknown]
  - Disease progression [Unknown]

NARRATIVE: CASE EVENT DATE: 20220101
